FAERS Safety Report 15888603 (Version 1)
Quarter: 2019Q1

REPORT INFORMATION
  Report Type: Spontaneous
  Country: US (occurrence: US)
  Receive Date: 20190125
  Receipt Date: 20190125
  Transmission Date: 20190417
  Serious: Yes (Hospitalization)
  Sender: FDA-Public Use
  Company Number: None

PATIENT
  Age: 24 Year
  Sex: Male
  Weight: 76 kg

DRUGS (1)
  1. HALOPERIDOL. [Suspect]
     Active Substance: HALOPERIDOL
     Indication: AGITATION
     Route: 030
     Dates: start: 20181120, end: 20181120

REACTIONS (6)
  - Extrapyramidal disorder [None]
  - Jaw disorder [None]
  - Dyspnoea [None]
  - Dystonia [None]
  - Screaming [None]
  - Paraesthesia oral [None]
